FAERS Safety Report 18321514 (Version 1)
Quarter: 2020Q3

REPORT INFORMATION
  Report Type: Spontaneous
  Country: JP (occurrence: JP)
  Receive Date: 20200928
  Receipt Date: 20200928
  Transmission Date: 20201103
  Serious: Yes (Other)
  Sender: FDA-Public Use
  Company Number: JP-PFIZER INC-2020279992

PATIENT

DRUGS (2)
  1. IBRANCE [Suspect]
     Active Substance: PALBOCICLIB
     Indication: BREAST CANCER METASTATIC
     Dosage: 125 MG
  2. IBRANCE [Suspect]
     Active Substance: PALBOCICLIB
     Dosage: 100 MG, CYCLIC (2 WEEKS ON AND 2 WEEKS OFF)

REACTIONS (9)
  - White blood cell count decreased [Recovered/Resolved]
  - Haemoglobin decreased [Recovered/Resolved]
  - Fracture [Recovering/Resolving]
  - Diabetes mellitus [Unknown]
  - Platelet count decreased [Recovered/Resolved]
  - Skin fragility [Unknown]
  - Neutrophil count decreased [Recovered/Resolved]
  - Fracture infection [Unknown]
  - Neoplasm progression [Unknown]
